FAERS Safety Report 6779399-7 (Version None)
Quarter: 2010Q2

REPORT INFORMATION
  Report Type: 
  Country: None (occurrence: None)
  Receive Date: 20100618
  Receipt Date: 20100614
  Transmission Date: 20101027
  Serious: Yes (Death, Hospitalization)
  Sender: FDA-Public Use
  Company Number: PHHY2010FR38795

PATIENT
  Age: 97 Year
  Sex: Male

DRUGS (3)
  1. VOLTAREN [Suspect]
     Indication: BACK PAIN
     Dosage: UNK
     Route: 030
  2. ZESTORETIC [Interacting]
     Dosage: 1 DF, QD,20 MG/12.5MG
     Route: 048
  3. FUROSEMIDE [Interacting]
     Dosage: 100 MG, QD
     Route: 048

REACTIONS (8)
  - BLOOD CREATININE INCREASED [None]
  - BLOOD POTASSIUM INCREASED [None]
  - BLOOD UREA INCREASED [None]
  - DIALYSIS [None]
  - DRUG INTERACTION [None]
  - MENINGITIS STAPHYLOCOCCAL [None]
  - RENAL FAILURE ACUTE [None]
  - SKIN NECROSIS [None]
